FAERS Safety Report 8989966 (Version 1)
Quarter: 2012Q4

REPORT INFORMATION
  Report Type: 
  Country: NO (occurrence: NO)
  Receive Date: 20121228
  Receipt Date: 20121228
  Transmission Date: 20130627
  Serious: Yes (Other)
  Sender: FDA-Public Use
  Company Number: PHHY2011NO117596

PATIENT
  Age: 48 Year
  Sex: Female

DRUGS (1)
  1. DOXYCYCLINE [Suspect]

REACTIONS (3)
  - Swelling [Recovered/Resolved]
  - Headache [Recovered/Resolved]
  - Rash [Recovered/Resolved]
